FAERS Safety Report 15958815 (Version 9)
Quarter: 2020Q1

REPORT INFORMATION
  Report Type: Report from Study
  Country: None (occurrence: FR)
  Receive Date: 20190213
  Receipt Date: 20200221
  Transmission Date: 20200409
  Serious: Yes (Death, Hospitalization, Other)
  Sender: FDA-Public Use
  Company Number: FR-ABBVIE-19K-056-2658881-00

PATIENT
  Age: 64 Year
  Sex: Male
  Weight: 78 kg

DRUGS (23)
  1. ZOLPIDEM [Concomitant]
     Active Substance: ZOLPIDEM TARTRATE
     Indication: INSOMNIA
     Dates: start: 20181128, end: 20181205
  2. MIANSERINE [Concomitant]
     Active Substance: MIANSERIN HYDROCHLORIDE
     Indication: ANTIDEPRESSANT THERAPY
     Dates: start: 20181116
  3. VENCLYXTO [Suspect]
     Active Substance: VENETOCLAX
     Indication: CHRONIC LYMPHOCYTIC LEUKAEMIA
     Route: 048
     Dates: start: 20181119, end: 20181125
  4. VENCLYXTO [Suspect]
     Active Substance: VENETOCLAX
     Route: 048
     Dates: start: 20181126, end: 20181202
  5. VENCLYXTO [Suspect]
     Active Substance: VENETOCLAX
     Route: 048
     Dates: start: 20181203, end: 20181209
  6. VENCLYXTO [Suspect]
     Active Substance: VENETOCLAX
     Route: 048
     Dates: start: 20190729, end: 20190808
  7. DOLIPRANE [Concomitant]
     Active Substance: ACETAMINOPHEN
     Indication: PAIN
     Dates: start: 20181123
  8. FOLIC ACID. [Concomitant]
     Active Substance: FOLIC ACID
     Indication: VITAMIN SUPPLEMENTATION
     Dates: start: 20181113
  9. BISOCE [Concomitant]
     Active Substance: BISOPROLOL
     Indication: CARDIAC FAILURE
     Dates: start: 20181107
  10. VENCLYXTO [Suspect]
     Active Substance: VENETOCLAX
     Route: 048
     Dates: start: 20181210, end: 20181216
  11. VENCLYXTO [Suspect]
     Active Substance: VENETOCLAX
     Route: 048
     Dates: start: 20181217
  12. VALACICLOVIR [Concomitant]
     Active Substance: VALACYCLOVIR HYDROCHLORIDE
     Indication: ANTIVIRAL PROPHYLAXIS
     Dates: start: 20181122
  13. ARANESP [Concomitant]
     Active Substance: DARBEPOETIN ALFA
     Indication: ANAEMIA
     Dates: start: 20190515
  14. ATORVASTATIN [Concomitant]
     Active Substance: ATORVASTATIN
     Indication: HYPOLIPIDAEMIA
     Dates: start: 20181106
  15. HUMALOG [Concomitant]
     Active Substance: INSULIN LISPRO
     Indication: DIABETES MELLITUS
     Dates: start: 20181106
  16. KARDEGIC [Concomitant]
     Active Substance: ASPIRIN DL-LYSINE
     Indication: ANTIPLATELET THERAPY
     Dates: start: 20181107
  17. VERSATIS [Concomitant]
     Active Substance: LIDOCAINE
     Indication: PAIN
     Dates: start: 20181122
  18. LASILIX [Concomitant]
     Active Substance: FUROSEMIDE
     Indication: OEDEMA
  19. DOLIPRANE [Concomitant]
     Active Substance: ACETAMINOPHEN
     Indication: PYREXIA
  20. LANTUS [Concomitant]
     Active Substance: INSULIN GLARGINE
     Indication: DIABETES MELLITUS
     Dates: start: 20181119
  21. LASILIX [Concomitant]
     Active Substance: FUROSEMIDE
     Indication: HYPERTENSION
     Dates: start: 20181129, end: 20181205
  22. AMLODIPINE [Concomitant]
     Active Substance: AMLODIPINE BESYLATE
     Indication: BLOOD PRESSURE MANAGEMENT
     Dates: start: 20181112
  23. VICTOZA [Concomitant]
     Active Substance: LIRAGLUTIDE
     Indication: DIABETES MELLITUS
     Dates: start: 20181114

REACTIONS (16)
  - Febrile neutropenia [Unknown]
  - Blood phosphorus increased [Recovered/Resolved]
  - Product communication issue [Fatal]
  - Acute respiratory failure [Recovered/Resolved]
  - Sepsis [Unknown]
  - Blood uric acid abnormal [Recovered/Resolved]
  - Osteitis [Recovered/Resolved]
  - Hyperkalaemia [Unknown]
  - Erythema [Recovered/Resolved]
  - Amputation [Unknown]
  - Anaemia [Unknown]
  - Blood calcium decreased [Recovered/Resolved]
  - Pneumonia [Fatal]
  - Secretion discharge [Recovered/Resolved]
  - Pain [Recovered/Resolved]
  - Hyperuricaemia [Unknown]

NARRATIVE: CASE EVENT DATE: 20181123
